FAERS Safety Report 5631177-8 (Version None)
Quarter: 2008Q1

REPORT INFORMATION
  Report Type: 
  Country: None (occurrence: None)
  Receive Date: 20080219
  Receipt Date: 20080207
  Transmission Date: 20080703
  Serious: Yes (Other)
  Sender: FDA-Public Use
  Company Number: US-PFIZER INC-2008013293

PATIENT

DRUGS (1)
  1. LYRICA [Suspect]
     Dosage: DAILY DOSE:450MG

REACTIONS (1)
  - ADRENAL INSUFFICIENCY [None]
